FAERS Safety Report 14479839 (Version 2)
Quarter: 2018Q2

REPORT INFORMATION
  Report Type: Report from Study
  Country: US (occurrence: US)
  Receive Date: 20180202
  Receipt Date: 20180418
  Transmission Date: 20180711
  Serious: Yes (Hospitalization)
  Sender: FDA-Public Use
  Company Number: US-ROCHE-2060365

PATIENT
  Age: 71 Year
  Sex: Female

DRUGS (3)
  1. ATEZOLIZUMAB. [Suspect]
     Active Substance: ATEZOLIZUMAB
     Indication: INFLAMMATORY CARCINOMA OF THE BREAST
     Route: 042
  2. ERIBULIN [Suspect]
     Active Substance: ERIBULIN
     Indication: INFLAMMATORY CARCINOMA OF THE BREAST
     Route: 042
  3. COBIMETINIB. [Suspect]
     Active Substance: COBIMETINIB
     Indication: INFLAMMATORY CARCINOMA OF THE BREAST
     Dosage: WITH OR WITHOUT FOOD ON A 3 WEEKS ON, 1 WEEK OFF SCHEDULE
     Route: 048

REACTIONS (8)
  - Platelet count decreased [Unknown]
  - Anaemia [Unknown]
  - Lymphocyte count decreased [Unknown]
  - Fatigue [Unknown]
  - Neutrophil count decreased [Unknown]
  - Chills [Unknown]
  - White blood cell count decreased [Unknown]
  - Influenza like illness [Unknown]

NARRATIVE: CASE EVENT DATE: 20180115
